FAERS Safety Report 12556075 (Version 2)
Quarter: 2016Q3

REPORT INFORMATION
  Report Type: Spontaneous
  Country: US (occurrence: US)
  Receive Date: 20160714
  Receipt Date: 20160715
  Transmission Date: 20161109
  Serious: Yes (Other)
  Sender: FDA-Public Use
  Company Number: US-009507513-1607USA003772

PATIENT
  Age: 19 Year
  Sex: Female
  Weight: 77.98 kg

DRUGS (1)
  1. NEXPLANON [Suspect]
     Active Substance: ETONOGESTREL
     Dosage: UNK
     Route: 059
     Dates: start: 20151025, end: 20160707

REACTIONS (2)
  - Unintended pregnancy [Unknown]
  - Pregnancy with implant contraceptive [Unknown]

NARRATIVE: CASE EVENT DATE: 20151113
